FAERS Safety Report 7821404-0 (Version None)
Quarter: 2011Q4

REPORT INFORMATION
  Report Type: 
  Country: None (occurrence: None)
  Receive Date: 20111018
  Receipt Date: 20111005
  Transmission Date: 20120403
  Serious: Yes (Hospitalization, Other)
  Sender: FDA-Public Use
  Company Number: US-ACTELION-A-US2011-54094

PATIENT

DRUGS (15)
  1. TRACLEER [Suspect]
     Indication: PULMONARY ARTERIAL HYPERTENSION
     Dosage: 125 MG, BID
     Route: 048
     Dates: start: 20031216
  2. LASIX [Concomitant]
  3. INSULIN [Concomitant]
  4. ASPIRIN [Concomitant]
  5. SYNTHROID [Concomitant]
  6. ZAROXOLYN [Concomitant]
  7. LIPITOR [Concomitant]
  8. COREG [Concomitant]
  9. HUMALOG [Concomitant]
  10. ALDACTONE [Concomitant]
  11. XANAX [Concomitant]
  12. XELODA [Suspect]
     Dosage: UNK
  13. ZYLOPRIM [Concomitant]
  14. POTASSIUM [Concomitant]
  15. PACERONE [Concomitant]

REACTIONS (11)
  - SWELLING [None]
  - COLORECTAL CANCER [None]
  - RASH [None]
  - DRUG HYPERSENSITIVITY [None]
  - SKIN BURNING SENSATION [None]
  - PULMONARY ARTERIAL HYPERTENSION [None]
  - WEIGHT INCREASED [None]
  - RIGHT VENTRICULAR FAILURE [None]
  - HYPOXIA [None]
  - OEDEMA [None]
  - DYSPNOEA [None]
